FAERS Safety Report 15059466 (Version 1)
Quarter: 2018Q2

REPORT INFORMATION
  Report Type: Spontaneous
  Country: PL (occurrence: PL)
  Receive Date: 20180625
  Receipt Date: 20180625
  Transmission Date: 20180711
  Serious: Yes (Other)
  Sender: FDA-Public Use
  Company Number: PL-JNJFOC-20180630019

PATIENT
  Age: 89 Year
  Sex: Female
  Weight: 50 kg

DRUGS (6)
  1. XARELTO [Suspect]
     Active Substance: RIVAROXABAN
     Indication: ATRIAL FIBRILLATION
     Route: 048
  2. PRESTARIUM [Concomitant]
     Active Substance: PERINDOPRIL
     Route: 065
  3. DIUVER [Concomitant]
     Active Substance: TORSEMIDE
     Route: 065
  4. MAGNESIUM LACTATE W/PYRIDOXINE HYDROCHLORIDE [Concomitant]
     Route: 065
  5. KALIPOZ [Concomitant]
     Active Substance: POTASSIUM CHLORIDE
     Route: 065
  6. METOPROLOL. [Concomitant]
     Active Substance: METOPROLOL
     Route: 065

REACTIONS (7)
  - Rectal haemorrhage [Unknown]
  - Internal haemorrhage [Unknown]
  - Product prescribing issue [Unknown]
  - Eye haemorrhage [Unknown]
  - Contusion [Unknown]
  - Prescribed underdose [Unknown]
  - Extravasation [Unknown]
